FAERS Safety Report 6189973-7 (Version None)
Quarter: 2009Q2

REPORT INFORMATION
  Report Type: 
  Country: None (occurrence: None)
  Receive Date: 20090514
  Receipt Date: 20090506
  Transmission Date: 20091009
  Serious: Yes (Other)
  Sender: FDA-Public Use
  Company Number: PHHY2009DE17418

PATIENT
  Sex: Male

DRUGS (2)
  1. ZOMETA [Suspect]
     Indication: METASTASES TO BONE
     Dosage: 4 MG EVERY 4 WEEKS
     Route: 042
     Dates: start: 20081101
  2. ZOMETA [Suspect]
     Dosage: 4 MG EVERY 4 WEEKS
     Route: 042
     Dates: start: 20090505

REACTIONS (7)
  - ANURIA [None]
  - HYPOAESTHESIA [None]
  - PARAESTHESIA [None]
  - RENAL FAILURE ACUTE [None]
  - TOOTH DISORDER [None]
  - TOOTHACHE [None]
  - VTH NERVE INJURY [None]
